FAERS Safety Report 8285006-7 (Version None)
Quarter: 2012Q2

REPORT INFORMATION
  Report Type: 
  Country: None (occurrence: None)
  Receive Date: 20120413
  Receipt Date: 20111004
  Transmission Date: 20120825
  Serious: No
  Sender: FDA-Public Use
  Company Number: US-ASTRAZENECA-2011SE47798

PATIENT
  Age: 45 Year
  Sex: Male

DRUGS (3)
  1. NEXIUM [Suspect]
     Route: 048
  2. PRILOSEC OTC [Suspect]
     Route: 048
  3. OMEPRAZOLE [Suspect]
     Route: 048

REACTIONS (3)
  - ABDOMINAL DISCOMFORT [None]
  - DRUG DOSE OMISSION [None]
  - DRUG INEFFECTIVE [None]
